FAERS Safety Report 4711484-3 (Version None)
Quarter: 2005Q3

REPORT INFORMATION
  Report Type: 
  Country: None (occurrence: None)
  Receive Date: 20050711
  Receipt Date: 20050628
  Transmission Date: 20060218
  Serious: Yes (Hospitalization)
  Sender: FDA-Public Use
  Company Number: 142513USA

PATIENT
  Age: 73 Year
  Sex: Male

DRUGS (7)
  1. CISPLATIN [Suspect]
     Indication: CHEMOTHERAPY
     Dates: start: 20050511, end: 20050511
  2. CISPLATIN [Suspect]
     Indication: NEOPLASM MALIGNANT
     Dates: start: 20050511, end: 20050511
  3. TAXOTERE [Suspect]
  4. ZOCOR [Concomitant]
  5. ACIPHEX [Concomitant]
  6. SALAGEN [Concomitant]
  7. TIMOPTIC [Concomitant]

REACTIONS (4)
  - ASTHENIA [None]
  - DEHYDRATION [None]
  - FLUID INTAKE REDUCED [None]
  - WEIGHT DECREASED [None]
